FAERS Safety Report 7078609-9 (Version None)
Quarter: 2010Q4

REPORT INFORMATION
  Report Type: 
  Country: None (occurrence: None)
  Receive Date: 20101102
  Receipt Date: 20101021
  Transmission Date: 20110411
  Serious: Yes (Other)
  Sender: FDA-Public Use
  Company Number: US-ELI_LILLY_AND_COMPANY-US201008001509

PATIENT
  Sex: Female

DRUGS (2)
  1. HUMULIN R [Suspect]
     Indication: TYPE 2 DIABETES MELLITUS
     Dosage: UNK, UNK
  2. HUMULIN R [Suspect]
     Dosage: UNK, UNK

REACTIONS (3)
  - HEPATIC CIRRHOSIS [None]
  - MOBILITY DECREASED [None]
  - OEDEMA PERIPHERAL [None]
